FAERS Safety Report 6346972-X (Version None)
Quarter: 2009Q3

REPORT INFORMATION
  Report Type: 
  Country: None (occurrence: None)
  Receive Date: 20090908
  Receipt Date: 20090908
  Transmission Date: 20100115
  Serious: Yes (Other)
  Sender: FDA-Public Use
  Company Number: None

PATIENT
  Sex: Female

DRUGS (1)
  1. DORZOLAMIDE HCL AND TIMOLOL MALEATE [Suspect]
     Indication: GLAUCOMA
     Dosage: 1 DROP IN RIGHT EYE TWO TMES DAILY OPHTHALMIC
     Route: 047
     Dates: start: 20090626, end: 20090904

REACTIONS (3)
  - INTRAOCULAR PRESSURE INCREASED [None]
  - PRODUCT SUBSTITUTION ISSUE [None]
  - VISION BLURRED [None]
